FAERS Safety Report 17192870 (Version 1)
Quarter: 2019Q4

REPORT INFORMATION
  Report Type: Spontaneous
  Country: US (occurrence: US)
  Receive Date: 20191223
  Receipt Date: 20191223
  Transmission Date: 20200122
  Serious: No
  Sender: FDA-Public Use
  Company Number: US-SA-2019SA352506

PATIENT
  Age: 67 Year
  Sex: Female

DRUGS (2)
  1. REPATHA [Suspect]
     Active Substance: EVOLOCUMAB
  2. PRALUENT [Suspect]
     Active Substance: ALIROCUMAB
     Indication: BLOOD CHOLESTEROL ABNORMAL
     Dosage: 75 MG, QOW
     Dates: start: 2019

REACTIONS (12)
  - Asthenia [Unknown]
  - Lymphadenopathy [Unknown]
  - Chest discomfort [Unknown]
  - Fatigue [Unknown]
  - Dysphonia [Unknown]
  - Sneezing [Recovered/Resolved]
  - Dyspnoea [Unknown]
  - Cough [Recovered/Resolved]
  - Cough [Unknown]
  - Pain [Unknown]
  - Nasopharyngitis [Unknown]
  - Oropharyngeal pain [Unknown]

NARRATIVE: CASE EVENT DATE: 2019
